FAERS Safety Report 12928064 (Version 1)
Quarter: 2016Q4

REPORT INFORMATION
  Report Type: Spontaneous
  Country: US (occurrence: US)
  Receive Date: 20161110
  Receipt Date: 20161110
  Transmission Date: 20170207
  Serious: No
  Sender: FDA-Public Use
  Company Number: US-TEVA-703918ACC

PATIENT
  Age: 37 Year
  Sex: Female
  Weight: 52.66 kg

DRUGS (1)
  1. AFTERA [Suspect]
     Active Substance: LEVONORGESTREL
     Indication: POST COITAL CONTRACEPTION
     Dates: start: 20161008, end: 20161008

REACTIONS (4)
  - Dysmenorrhoea [Not Recovered/Not Resolved]
  - Headache [Recovered/Resolved]
  - Hypomenorrhoea [Not Recovered/Not Resolved]
  - Nausea [Recovered/Resolved]

NARRATIVE: CASE EVENT DATE: 20161009
